FAERS Safety Report 18543555 (Version 3)
Quarter: 2022Q2

REPORT INFORMATION
  Report Type: Spontaneous
  Country: US (occurrence: None)
  Receive Date: 20201125
  Receipt Date: 20220506
  Transmission Date: 20220721
  Serious: Yes (Other)
  Sender: FDA-Public Use
  Company Number: US-ROCHE-2718204

PATIENT
  Age: 66 Year
  Sex: Female
  Weight: 76.726 kg

DRUGS (10)
  1. RITUXAN [Suspect]
     Active Substance: RITUXIMAB
     Indication: Interstitial lung disease
     Dosage: REPEATED EVERY 6-9 MONTHS INDEFINITE ;ONGOING: YES
     Route: 042
     Dates: start: 202006
  2. RITUXAN [Suspect]
     Active Substance: RITUXIMAB
     Indication: Myositis
  3. CELLCEPT [Suspect]
     Active Substance: MYCOPHENOLATE MOFETIL
     Indication: Polymyositis
     Dosage: 500 MG TABLETS?REPEATED EVERY 6-9 MONTHS INDEFINITE ;ONGOING: YES
     Route: 048
     Dates: start: 201907
  4. CELLCEPT [Suspect]
     Active Substance: MYCOPHENOLATE MOFETIL
     Dosage: 500 MG TABLET?TAKE 2 TABLETS BY MOUTH 2 TIMES A DAY
     Route: 048
     Dates: start: 20220502
  5. MONTELUKAST [Concomitant]
     Active Substance: MONTELUKAST SODIUM
     Indication: Interstitial lung disease
  6. ALBUTEROL\IPRATROPIUM [Concomitant]
     Active Substance: ALBUTEROL\IPRATROPIUM
     Indication: Interstitial lung disease
     Dosage: ONGOING :YES
  7. FUROSEMIDE [Concomitant]
     Active Substance: FUROSEMIDE
     Indication: Interstitial lung disease
  8. FLONASE [Concomitant]
     Active Substance: FLUTICASONE PROPIONATE
     Indication: Interstitial lung disease
  9. CETIRIZINE [Concomitant]
     Active Substance: CETIRIZINE HYDROCHLORIDE
     Indication: Interstitial lung disease
  10. PROAIR HFA [Concomitant]
     Active Substance: ALBUTEROL SULFATE
     Indication: Interstitial lung disease
     Dosage: ONGOING :YES

REACTIONS (3)
  - Tonsil cancer [Not Recovered/Not Resolved]
  - Off label use [Unknown]
  - Off label use [Unknown]

NARRATIVE: CASE EVENT DATE: 20201007
